FAERS Safety Report 18267567 (Version 1)
Quarter: 2020Q3

REPORT INFORMATION
  Report Type: Spontaneous
  Country: US (occurrence: US)
  Receive Date: 20200915
  Receipt Date: 20200915
  Transmission Date: 20201103
  Serious: No
  Sender: FDA-Public Use
  Company Number: US-MYLANLABS-2020M1076984

PATIENT
  Sex: Female

DRUGS (1)
  1. LIDOCAINE PATCH [Suspect]
     Active Substance: LIDOCAINE
     Indication: MYALGIA
     Dosage: UNK
     Route: 062

REACTIONS (3)
  - Off label use [Not Recovered/Not Resolved]
  - Product packaging issue [Not Recovered/Not Resolved]
  - Product adhesion issue [Not Recovered/Not Resolved]
